FAERS Safety Report 8796619 (Version 1)
Quarter: 2012Q4

REPORT INFORMATION
  Report Type: Report from Study
  Country: CA (occurrence: CA)
  Receive Date: 20120919
  Receipt Date: 20120919
  Transmission Date: 20130627
  Serious: Yes (Hospitalization)
  Sender: FDA-Public Use
  Company Number: CA-ROCHE-1125490

PATIENT
  Age: 59 Year
  Sex: Female
  Weight: 82.5 kg

DRUGS (2)
  1. AVASTIN [Suspect]
     Indication: GLIOBLASTOMA
     Route: 042
     Dates: start: 20110301, end: 20111101
  2. DECADRON [Concomitant]

REACTIONS (1)
  - Neoplasm progression [Recovered/Resolved]
